FAERS Safety Report 8973956 (Version 1)
Quarter: 2012Q4

REPORT INFORMATION
  Report Type: Report from Study
  Country: US (occurrence: US)
  Receive Date: 20121218
  Receipt Date: 20121218
  Transmission Date: 20130627
  Serious: Yes (Hospitalization)
  Sender: FDA-Public Use
  Company Number: PHHO2009US09440

PATIENT
  Age: 52 Year
  Sex: Female
  Weight: 81.18 kg

DRUGS (26)
  1. AFINITOR [Suspect]
     Indication: GLIOBLASTOMA MULTIFORME
     Dosage: 10 mg, UNK
     Route: 048
     Dates: start: 20090827
  2. TEMOZOLOMIDE [Suspect]
     Indication: GLIOBLASTOMA MULTIFORME
     Dosage: 150 mg, UNK
     Route: 048
     Dates: start: 20090520, end: 20090704
  3. TEMOZOLOMIDE [Suspect]
     Dosage: 150 mg, UNK
     Route: 048
     Dates: end: 20090722
  4. AVASTIN [Suspect]
     Indication: GLIOBLASTOMA MULTIFORME
     Dosage: 780 mg, UNK
     Route: 042
     Dates: start: 20090520, end: 20090722
  5. KEPPRA [Concomitant]
     Indication: CONVULSION
     Dosage: 1500 mg, BID
     Route: 048
     Dates: start: 20090409, end: 20090724
  6. DILANTIN [Concomitant]
     Indication: PRODUCT USED FOR UNKNOWN INDICATION
  7. LOPRESSOR [Concomitant]
  8. LORAZEPAM [Concomitant]
     Indication: PRODUCT USED FOR UNKNOWN INDICATION
     Dosage: 0.5 mg, UNK
     Dates: start: 20090515
  9. DECADRON [Concomitant]
     Indication: PRODUCT USED FOR UNKNOWN INDICATION
     Dosage: UNK
     Dates: start: 20090409
  10. CITALOPRAM [Concomitant]
     Dosage: UNK
     Route: 048
     Dates: start: 20090409, end: 20090411
  11. LEVOFLOXACIN [Concomitant]
  12. ZOLPIDEM [Concomitant]
     Indication: PRODUCT USED FOR UNKNOWN INDICATION
  13. MYLANTA [Concomitant]
  14. PEPCID [Concomitant]
     Indication: PRODUCT USED FOR UNKNOWN INDICATION
     Dosage: UNK
     Dates: start: 20090409
  15. DIVALPROEX SODIUM [Concomitant]
     Indication: PRODUCT USED FOR UNKNOWN INDICATION
     Dosage: 750 mg, UNK
     Dates: start: 20090812
  16. PROCHLORPERAZINE [Concomitant]
     Indication: NAUSEA
     Dosage: 10 mg, PRN
     Dates: start: 20090515
  17. DEPAKOTE [Concomitant]
     Indication: PRODUCT USED FOR UNKNOWN INDICATION
     Dosage: UNK
     Route: 048
     Dates: start: 20090812
  18. LEVETIRACETAM [Concomitant]
     Dosage: 1500 mg (3 tab) BID
  19. FAMOTIDINE [Concomitant]
  20. DEXAMETHASONE [Concomitant]
  21. METOPROLOL [Concomitant]
     Indication: PRODUCT USED FOR UNKNOWN INDICATION
     Dosage: 75 mg, BID
     Dates: start: 20090812
  22. PHENYTOIN [Concomitant]
  23. ALUMINIUM HYDROXIDE [Concomitant]
  24. CALCIUM CARBONATE [Concomitant]
  25. MAGNESIUM HYDROXIDE [Concomitant]
  26. SIMETICONE [Concomitant]

REACTIONS (16)
  - Syncope [Unknown]
  - Loss of consciousness [Recovered/Resolved]
  - Deep vein thrombosis [Unknown]
  - Pain [Unknown]
  - Convulsion [Recovered/Resolved]
  - Hallucination, visual [Recovered/Resolved with Sequelae]
  - Escherichia infection [Recovered/Resolved]
  - Renal cyst [Recovered/Resolved]
  - Atelectasis [Recovered/Resolved]
  - Pyrexia [Unknown]
  - Vasogenic cerebral oedema [Recovered/Resolved]
  - Fall [Recovered/Resolved]
  - Respiratory distress [Recovered/Resolved]
  - Infection [Recovered/Resolved]
  - Dizziness [Recovered/Resolved with Sequelae]
  - Fatigue [Recovered/Resolved with Sequelae]
